FAERS Safety Report 7999012-0 (Version None)
Quarter: 2011Q4

REPORT INFORMATION
  Report Type: 
  Country: None (occurrence: None)
  Receive Date: 20111221
  Receipt Date: 20111209
  Transmission Date: 20120403
  Serious: Yes (Death)
  Sender: FDA-Public Use
  Company Number: US-CELGENEUS-163-21880-11122053

PATIENT
  Sex: Female

DRUGS (11)
  1. PREDNISONE TAB [Concomitant]
     Dosage: 20 MILLIGRAM
     Route: 065
     Dates: start: 20110218
  2. ACYCLOVIR [Concomitant]
     Route: 065
  3. REVLIMID [Suspect]
     Indication: MULTIPLE MYELOMA
     Dosage: 25 MILLIGRAM
     Route: 048
     Dates: start: 20100401
  4. CALCIUM [Concomitant]
     Route: 065
  5. FISH OIL [Concomitant]
     Route: 065
  6. ALLEGRA-D 12 HOUR [Concomitant]
     Route: 065
  7. MULTI-VITAMIN [Concomitant]
     Route: 065
  8. VITAMIN D [Concomitant]
     Route: 065
  9. REVLIMID [Suspect]
     Dosage: 10 MILLIGRAM
     Route: 048
     Dates: start: 20100701
  10. REVLIMID [Suspect]
     Dosage: 10 MILLIGRAM
     Route: 048
     Dates: start: 20110801
  11. REVLIMID [Suspect]
     Route: 048
     Dates: start: 20070101, end: 20080901

REACTIONS (1)
  - MULTIPLE MYELOMA [None]
